FAERS Safety Report 8964743 (Version 1)
Quarter: 2012Q4

REPORT INFORMATION
  Report Type: 
  Country: SE (occurrence: SE)
  Receive Date: 20121213
  Receipt Date: 20121213
  Transmission Date: 20130627
  Serious: Yes (Death, Life-Threatening)
  Sender: FDA-Public Use
  Company Number: SE-ROCHE-1167411

PATIENT
  Age: 82 Year
  Sex: Female

DRUGS (5)
  1. ACTILYSE [Suspect]
     Indication: PULMONARY EMBOLISM
     Route: 065
     Dates: start: 20120902, end: 20120902
  2. NIFEREX [Concomitant]
  3. VENLAFAXINE [Concomitant]
  4. THERALEN [Concomitant]
  5. INNOHEP [Concomitant]

REACTIONS (2)
  - Death [Fatal]
  - Haemorrhage [Unknown]
